FAERS Safety Report 5635752-6 (Version None)
Quarter: 2008Q1

REPORT INFORMATION
  Report Type: 
  Country: None (occurrence: None)
  Receive Date: 20080220
  Receipt Date: 20080208
  Transmission Date: 20080703
  Serious: No
  Sender: FDA-Public Use
  Company Number: 2008-171897-NL

PATIENT
  Age: 19 Year
  Sex: Female

DRUGS (1)
  1. MARVELON [Suspect]
     Dosage: DF

REACTIONS (3)
  - COGNITIVE DISORDER [None]
  - ENCEPHALOPATHY [None]
  - VISUAL ACUITY REDUCED [None]
